FAERS Safety Report 6266251-9 (Version None)
Quarter: 2009Q3

REPORT INFORMATION
  Report Type: 
  Country: None (occurrence: None)
  Receive Date: 20090713
  Receipt Date: 20090703
  Transmission Date: 20100115
  Serious: No
  Sender: FDA-Public Use
  Company Number: IT-AVENTIS-200916691GDDC

PATIENT
  Age: 32 Year
  Sex: Female

DRUGS (2)
  1. ARAVA [Suspect]
     Indication: RHEUMATOID ARTHRITIS
     Route: 048
     Dates: start: 20080509, end: 20090615
  2. ENBREL [Suspect]
     Indication: RHEUMATOID ARTHRITIS
     Dosage: DOSE: UNK
     Route: 058
     Dates: start: 20080701

REACTIONS (1)
  - DRUG EXPOSURE DURING PREGNANCY [None]
